FAERS Safety Report 25908456 (Version 1)
Quarter: 2025Q4

REPORT INFORMATION
  Report Type: Spontaneous
  Country: EU (occurrence: EU)
  Receive Date: 20251010
  Receipt Date: 20251010
  Transmission Date: 20260117
  Serious: Yes (Death)
  Sender: ABBVIE
  Company Number: EU-PIRAMAL PHARMA LIMITED-2025-PPL-000563

PATIENT
  Age: 76 Year
  Sex: Female
  Weight: 54 kg

DRUGS (8)
  1. SEVOFLURANE [Suspect]
     Active Substance: SEVOFLURANE
     Indication: Maintenance of anaesthesia
     Dosage: 1.0 VOL%
     Route: 055
  2. MIDAZOLAM [Suspect]
     Active Substance: MIDAZOLAM
     Indication: Induction of anaesthesia
     Route: 042
  3. PIRITRAMIDE [Suspect]
     Active Substance: PIRITRAMIDE
     Indication: Postoperative analgesia
     Route: 055
  4. FLUNITRAZEPAM [Concomitant]
     Active Substance: FLUNITRAZEPAM
     Indication: Premedication
     Route: 065
  5. PANCURONIUM [Concomitant]
     Active Substance: PANCURONIUM
     Indication: Endotracheal intubation
     Route: 042
  6. SUFENTANIL [Suspect]
     Active Substance: SUFENTANIL
     Indication: Induction and maintenance of anaesthesia
     Dosage: TOTAL DOSE INCLUDING THE BOLUS FOR INDUCTION 3.1 UG PER KG
     Route: 042
  7. SUFENTANIL [Suspect]
     Active Substance: SUFENTANIL
     Indication: Induction and maintenance of anaesthesia
     Route: 042
  8. PROPOFOL [Concomitant]
     Active Substance: PROPOFOL
     Indication: Cardiopulmonary bypass
     Route: 065

REACTIONS (7)
  - Drug-induced liver injury [Fatal]
  - Oliguria [Unknown]
  - Hypoxia [Unknown]
  - Acidosis [Unknown]
  - Pyrexia [Unknown]
  - Hypotension [Unknown]
  - Confusional state [Unknown]
